FAERS Safety Report 8428279-X (Version None)
Quarter: 2012Q2

REPORT INFORMATION
  Report Type: 
  Country: None (occurrence: None)
  Receive Date: 20120611
  Receipt Date: 20120606
  Transmission Date: 20120825
  Serious: Yes (Other)
  Sender: FDA-Public Use
  Company Number: FR-MERCK-1206FRA00038

PATIENT
  Age: 75 Year
  Sex: Female

DRUGS (6)
  1. METOPROLOL TARTRATE [Concomitant]
     Indication: HYPERTENSION
     Route: 048
  2. SINEMET [Suspect]
     Indication: PARKINSON'S DISEASE
     Route: 048
     Dates: start: 20060101
  3. BENSERAZIDE HYDROCHLORIDE AND LEVODOPA [Concomitant]
     Indication: PARKINSON'S DISEASE
     Route: 048
     Dates: start: 20120301
  4. SINEMET [Suspect]
     Route: 048
  5. ROPINIROLE HYDROCHLORIDE [Concomitant]
     Indication: PARKINSON'S DISEASE
     Route: 048
     Dates: start: 20060101
  6. AMILORIDE HYDROCHLORIDE AND HYDROCHLOROTHIAZIDE [Concomitant]
     Indication: HYPERTENSION
     Route: 048

REACTIONS (1)
  - LENTIGO MALIGNA STAGE UNSPECIFIED [None]
